FAERS Safety Report 25945232 (Version 1)
Quarter: 2025Q4

REPORT INFORMATION
  Report Type: Report from Study
  Country: US (occurrence: US)
  Receive Date: 20251021
  Receipt Date: 20251021
  Transmission Date: 20260118
  Serious: No
  Sender: AGIOS PHARMACEUTICALS
  Company Number: US-AGIOS-2510US04516

PATIENT
  Sex: Female

DRUGS (1)
  1. MITAPIVAT [Suspect]
     Active Substance: MITAPIVAT
     Indication: Hereditary haemolytic anaemia
     Dosage: 50 MILLIGRAM, BID
     Route: 048
     Dates: start: 20230921

REACTIONS (8)
  - Product dose omission issue [Unknown]
  - COVID-19 [Unknown]
  - Haemoglobin decreased [Unknown]
  - Fatigue [Unknown]
  - Dyspnoea [Unknown]
  - Arthralgia [Unknown]
  - Chest pain [Unknown]
  - Off label use [Unknown]
